FAERS Safety Report 23643899 (Version 1)
Quarter: 2024Q1

REPORT INFORMATION
  Report Type: Spontaneous
  Country: JP (occurrence: JP)
  Receive Date: 20240318
  Receipt Date: 20240318
  Transmission Date: 20240410
  Serious: Yes (Hospitalization)
  Sender: FDA-Public Use
  Company Number: JP-CHUGAI-2024007477

PATIENT
  Age: 70 Year
  Sex: Male
  Weight: 52 kg

DRUGS (3)
  1. TECENTRIQ [Suspect]
     Active Substance: ATEZOLIZUMAB
     Indication: Small cell lung cancer extensive stage
     Route: 065
     Dates: start: 20231207, end: 20231207
  2. CARBOPLATIN [Concomitant]
     Active Substance: CARBOPLATIN
     Indication: Small cell lung cancer extensive stage
     Dates: start: 20231207, end: 20231207
  3. ETOPOSIDE [Concomitant]
     Active Substance: ETOPOSIDE
     Indication: Small cell lung cancer extensive stage
     Dates: start: 20231207, end: 20231207

REACTIONS (4)
  - Encephalitis [Recovering/Resolving]
  - Akathisia [Recovering/Resolving]
  - Pneumonia aspiration [Unknown]
  - Decreased activity [Unknown]

NARRATIVE: CASE EVENT DATE: 20231213
